FAERS Safety Report 25681268 (Version 1)
Quarter: 2025Q3

REPORT INFORMATION
  Report Type: Spontaneous
  Country: GB (occurrence: GB)
  Receive Date: 20250814
  Receipt Date: 20250814
  Transmission Date: 20251020
  Serious: Yes (Other)
  Sender: PHARMACOSMOS A/S
  Company Number: None

PATIENT
  Age: 51 Year
  Sex: Female
  Weight: 76 kg

DRUGS (4)
  1. FERRIC DERISOMALTOSE [Suspect]
     Active Substance: FERRIC DERISOMALTOSE
     Indication: Iron deficiency anaemia
     Dates: start: 20250729, end: 20250729
  2. FERRIC DERISOMALTOSE [Suspect]
     Active Substance: FERRIC DERISOMALTOSE
     Indication: Iron deficiency anaemia
     Dates: start: 20250729, end: 20250729
  3. TRANEXAMIC ACID [Concomitant]
     Active Substance: TRANEXAMIC ACID
  4. PREDNISOLONE [Concomitant]
     Active Substance: PREDNISOLONE

REACTIONS (6)
  - Loss of consciousness [Recovered/Resolved]
  - Lethargy [Recovering/Resolving]
  - Hypotension [Recovered/Resolved]
  - Dyspnoea [Recovered/Resolved]
  - Bradycardia [Recovered/Resolved]
  - Abdominal pain [Recovered/Resolved]

NARRATIVE: CASE EVENT DATE: 20250729
